FAERS Safety Report 8296128-9 (Version None)
Quarter: 2012Q2

REPORT INFORMATION
  Report Type: 
  Country: None (occurrence: None)
  Receive Date: 20120418
  Receipt Date: 20120410
  Transmission Date: 20120825
  Serious: Yes (Death)
  Sender: FDA-Public Use
  Company Number: US-GLAXOSMITHKLINE-A0973980A

PATIENT
  Age: 68 Year
  Sex: Male

DRUGS (5)
  1. FLOLAN [Suspect]
     Indication: PRODUCT USED FOR UNKNOWN INDICATION
     Route: 042
     Dates: start: 20120208
  2. LASIX [Concomitant]
  3. COUMADIN [Concomitant]
  4. TRACLEER [Concomitant]
  5. COZAAR [Concomitant]

REACTIONS (1)
  - DEATH [None]
